FAERS Safety Report 9282256 (Version 1)
Quarter: 2013Q2

REPORT INFORMATION
  Report Type: Spontaneous
  Country: GB (occurrence: GB)
  Receive Date: 20130510
  Receipt Date: 20130510
  Transmission Date: 20140414
  Serious: Yes (Other)
  Sender: FDA-Public Use
  Company Number: GB-RANBAXY-2013R1-68435

PATIENT
  Age: 20 Year
  Sex: Female

DRUGS (2)
  1. RISPERIDONE [Suspect]
     Indication: PRODUCT USED FOR UNKNOWN INDICATION
     Route: 065
  2. NITRAZEPAM [Suspect]
     Indication: POOR QUALITY SLEEP
     Dosage: 5 MG, QD
     Route: 065
     Dates: start: 201208

REACTIONS (7)
  - Intentional self-injury [Unknown]
  - Drug interaction [Unknown]
  - Feeling abnormal [Unknown]
  - Intentional drug misuse [Unknown]
  - Drug ineffective [Unknown]
  - Rebound effect [Unknown]
  - Sleep disorder [Unknown]
